FAERS Safety Report 9833077 (Version 2)
Quarter: 2014Q1

REPORT INFORMATION
  Report Type: Spontaneous
  Country: PL (occurrence: PL)
  Receive Date: 20140121
  Receipt Date: 20140212
  Transmission Date: 20141002
  Serious: Yes (Hospitalization)
  Sender: FDA-Public Use
  Company Number: PL-BAXTER-2014BAX002211

PATIENT
  Age: 44 Year
  Sex: Male

DRUGS (5)
  1. ENDOXAN [Suspect]
     Indication: LYMPHOMA
  2. RITUXIMAB [Suspect]
     Indication: LYMPHOMA
     Route: 065
  3. DOXORUBICIN [Suspect]
     Indication: LYMPHOMA
     Route: 065
  4. VINCRISTINE [Suspect]
     Indication: LYMPHOMA
     Route: 065
  5. PREDNISONE [Suspect]
     Indication: LYMPHOMA
     Route: 065

REACTIONS (4)
  - Campylobacter sepsis [Recovering/Resolving]
  - Leukopenia [Recovering/Resolving]
  - C-reactive protein increased [Recovering/Resolving]
  - Pulmonary embolism [Recovering/Resolving]
